FAERS Safety Report 15785439 (Version 6)
Quarter: 2019Q3

REPORT INFORMATION
  Report Type: Spontaneous
  Country: US (occurrence: US)
  Receive Date: 20190103
  Receipt Date: 20190819
  Transmission Date: 20191004
  Serious: No
  Sender: FDA-Public Use
  Company Number: US-PFIZER INC-2019001280

PATIENT
  Age: 67 Year
  Sex: Female
  Weight: 66 kg

DRUGS (4)
  1. LYRICA [Suspect]
     Active Substance: PREGABALIN
     Indication: FIBROMYALGIA
  2. LYRICA [Suspect]
     Active Substance: PREGABALIN
     Indication: NEURALGIA
     Dosage: 150 MG, 3X/DAY (1 ORAL THREE TIMES A DAY FOR 30 DAYS)
     Route: 048
     Dates: start: 2011
  3. LYRICA [Suspect]
     Active Substance: PREGABALIN
     Indication: NEURALGIA
  4. LYRICA [Suspect]
     Active Substance: PREGABALIN
     Indication: NEURITIS
     Dosage: 150 MG, 4X/DAY
     Route: 048

REACTIONS (7)
  - Cyst [Unknown]
  - Sinusitis [Unknown]
  - Off label use [Unknown]
  - Intentional product misuse [Unknown]
  - Cough [Unknown]
  - Bronchitis [Unknown]
  - Back pain [Unknown]

NARRATIVE: CASE EVENT DATE: 201811
